FAERS Safety Report 20685465 (Version 2)
Quarter: 2022Q2

REPORT INFORMATION
  Report Type: Report from Study
  Country: BR (occurrence: BR)
  Receive Date: 20220407
  Receipt Date: 20220419
  Transmission Date: 20220720
  Serious: Yes (Hospitalization)
  Sender: FDA-Public Use
  Company Number: BR-ViiV Healthcare Limited-BR2022GSK010887

PATIENT
  Age: 27 Year
  Sex: Female
  Weight: 40.7 kg

DRUGS (9)
  1. FOSTEMSAVIR [Suspect]
     Active Substance: FOSTEMSAVIR
     Indication: HIV infection
     Dosage: 600 MG, BID
     Route: 048
     Dates: start: 20160331
  2. DARUNAVIR [Concomitant]
     Active Substance: DARUNAVIR
     Indication: HIV infection
     Dosage: 1200 MG, QD
     Route: 048
     Dates: start: 20160331
  3. ETRAVIRINE [Concomitant]
     Active Substance: ETRAVIRINE
     Indication: HIV infection
     Dosage: 400 MG, QD
     Route: 048
     Dates: start: 20160331
  4. DOLUTEGRAVIR [Concomitant]
     Active Substance: DOLUTEGRAVIR
     Indication: HIV infection
     Dosage: 100 MG, QD
     Route: 048
     Dates: start: 20160331
  5. RITONAVIR [Concomitant]
     Active Substance: RITONAVIR
     Indication: HIV infection
     Dosage: 200 MG, QD
     Route: 048
     Dates: start: 20160331
  6. CORONAVAC COVID-19 VACCINE [Concomitant]
     Indication: COVID-19
     Dosage: UNK
     Dates: start: 20210823, end: 20210823
  7. CORONAVAC COVID-19 VACCINE [Concomitant]
     Dosage: UNK
     Dates: start: 20210929, end: 20210929
  8. FOLIC ACID [Concomitant]
     Active Substance: FOLIC ACID
     Indication: Neural tube defect
     Dosage: 5 MG
     Route: 048
     Dates: start: 20220117, end: 202201
  9. COVID-19 VACCINE [Concomitant]
     Indication: COVID-19 prophylaxis
     Dosage: 0.5 ML
     Route: 030
     Dates: start: 20220117, end: 20220117

REACTIONS (2)
  - Abortion spontaneous [Recovered/Resolved]
  - Exposure during pregnancy [Unknown]

NARRATIVE: CASE EVENT DATE: 20220128
